FAERS Safety Report 4366244-2 (Version None)
Quarter: 2004Q2

REPORT INFORMATION
  Report Type: 
  Country: None (occurrence: None)
  Receive Date: 20040527
  Receipt Date: 20040518
  Transmission Date: 20050107
  Serious: Yes (Other)
  Sender: FDA-Public Use
  Company Number: JP-JNJFOC-20040505684

PATIENT
  Age: 75 Year
  Sex: Female

DRUGS (7)
  1. ITRIZOLE [Suspect]
     Indication: ONYCHOMYCOSIS
     Route: 049
  2. NIFEDIPINE [Concomitant]
     Route: 065
  3. FLUVOXAMINE MALEATE [Concomitant]
     Route: 065
  4. ALPRAZOLAM [Concomitant]
     Route: 065
  5. GEFARNATE [Concomitant]
     Route: 065
  6. CIMETIDINE HCL [Concomitant]
     Route: 065
  7. TEPRENONE [Concomitant]
     Route: 065

REACTIONS (3)
  - CARDIOMEGALY [None]
  - OEDEMA PERIPHERAL [None]
  - PLEURAL EFFUSION [None]
